FAERS Safety Report 16635390 (Version 2)
Quarter: 2019Q3

REPORT INFORMATION
  Report Type: Spontaneous
  Country: CN (occurrence: CN)
  Receive Date: 20190726
  Receipt Date: 20190730
  Transmission Date: 20191004
  Serious: Yes (Death)
  Sender: FDA-Public Use
  Company Number: CN-ASTRAZENECA-2019SF06636

PATIENT
  Sex: Female

DRUGS (1)
  1. LYNPARZA [Suspect]
     Active Substance: OLAPARIB
     Indication: OVARIAN EPITHELIAL CANCER
     Dosage: 300.0MG UNKNOWN
     Route: 048

REACTIONS (5)
  - Renal failure [Fatal]
  - Ascites [Fatal]
  - Drug ineffective [Unknown]
  - Intestinal obstruction [Fatal]
  - Ileus [Fatal]
